FAERS Safety Report 6080070-8 (Version None)
Quarter: 2009Q1

REPORT INFORMATION
  Report Type: 
  Country: None (occurrence: None)
  Receive Date: 20090217
  Receipt Date: 20090210
  Transmission Date: 20090719
  Serious: Yes (Death)
  Sender: FDA-Public Use
  Company Number: US-PFIZER INC-2008094203

PATIENT

DRUGS (1)
  1. ZITHROMAX [Suspect]
     Route: 042

REACTIONS (2)
  - CARDIAC ARREST [None]
  - MEDICATION ERROR [None]
